FAERS Safety Report 12429752 (Version 9)
Quarter: 2017Q1

REPORT INFORMATION
  Report Type: Report from Study
  Country: CH (occurrence: CH)
  Receive Date: 20160602
  Receipt Date: 20170221
  Transmission Date: 20170428
  Serious: Yes (Death, Life-Threatening, Hospitalization, Other)
  Sender: FDA-Public Use
  Company Number: CH-INCYTE CORPORATION-2015IN002658

PATIENT
  Age: 74 Year
  Sex: Female
  Weight: 52 kg

DRUGS (4)
  1. JAKAVI [Suspect]
     Active Substance: RUXOLITINIB
     Indication: MYELOFIBROSIS
     Dosage: 40 MG, QD
     Route: 048
     Dates: start: 201207
  2. DIFLUCAN [Suspect]
     Active Substance: FLUCONAZOLE
     Indication: ORAL CANDIDIASIS
     Route: 065
  3. VALTREX [Concomitant]
     Active Substance: VALACYCLOVIR HYDROCHLORIDE
     Indication: PROPHYLAXIS
     Dosage: 1 G, QD
     Route: 065
     Dates: start: 20130318
  4. VALTREX [Concomitant]
     Active Substance: VALACYCLOVIR HYDROCHLORIDE
     Indication: PRODUCT USED FOR UNKNOWN INDICATION

REACTIONS (38)
  - Hypervolaemia [Unknown]
  - Pneumonia [Recovered/Resolved]
  - Pulmonary arterial hypertension [Unknown]
  - Vomiting [Unknown]
  - Cardiac disorder [Unknown]
  - Atrial flutter [Unknown]
  - Cardiac arrest [Recovered/Resolved]
  - Diarrhoea [Unknown]
  - Enteritis [Unknown]
  - Atrial fibrillation [Unknown]
  - Oral candidiasis [Unknown]
  - Cardiomegaly [Unknown]
  - Sepsis [Recovered/Resolved]
  - Bacterial infection [Unknown]
  - Fungal infection [Unknown]
  - Tachyarrhythmia [Unknown]
  - Asthenia [Unknown]
  - Neutropenia [Fatal]
  - Pericardial effusion [Unknown]
  - Influenza like illness [Unknown]
  - Restless legs syndrome [Unknown]
  - Abdominal pain [Unknown]
  - Blood pressure diastolic decreased [Unknown]
  - Abdominal pain upper [Unknown]
  - Sepsis [Fatal]
  - Renal failure [Fatal]
  - Dehydration [Unknown]
  - Cardiac failure [Fatal]
  - Lung infection [Recovered/Resolved]
  - Mitral valve incompetence [Unknown]
  - Chronic kidney disease [Unknown]
  - Urinary tract infection [Unknown]
  - Gout [Unknown]
  - Oesophageal candidiasis [Unknown]
  - Anaemia [Unknown]
  - Acute kidney injury [Unknown]
  - Osteopenia [Unknown]
  - Dizziness [Unknown]

NARRATIVE: CASE EVENT DATE: 20150517
